FAERS Safety Report 7141108-X (Version None)
Quarter: 2010Q4

REPORT INFORMATION
  Report Type: 
  Country: None (occurrence: None)
  Receive Date: 20101122
  Receipt Date: 20101108
  Transmission Date: 20110411
  Serious: Yes (Other)
  Sender: FDA-Public Use
  Company Number: IR-ACCORD-006691

PATIENT
  Age: 40 Year
  Sex: Female

DRUGS (1)
  1. TOPIRAMATE [Suspect]
     Indication: MIGRAINE

REACTIONS (5)
  - HYPOPYON [None]
  - IRIDOCYCLITIS [None]
  - IRIS ADHESIONS [None]
  - UVEITIS [None]
  - VISION BLURRED [None]
